FAERS Safety Report 16223769 (Version 1)
Quarter: 2019Q2

REPORT INFORMATION
  Report Type: Spontaneous
  Country: US (occurrence: US)
  Receive Date: 20190419
  Receipt Date: 20190419
  Transmission Date: 20190711
  Serious: Yes (Other)
  Sender: FDA-Public Use
  Company Number: None

PATIENT
  Age: 20 Year
  Sex: Female
  Weight: 45.81 kg

DRUGS (2)
  1. OMEPRAZOLE. [Suspect]
     Active Substance: OMEPRAZOLE
  2. PAPAYA ENZYMES [Concomitant]

REACTIONS (3)
  - Chest discomfort [None]
  - Skin burning sensation [None]
  - Pruritus [None]
